FAERS Safety Report 10484898 (Version 1)
Quarter: 2014Q3

REPORT INFORMATION
  Report Type: Report from Study
  Country: CG (occurrence: CG)
  Receive Date: 20140930
  Receipt Date: 20140930
  Transmission Date: 20150326
  Serious: Yes (Death, Other)
  Sender: FDA-Public Use
  Company Number: PHHY2014CG126426

PATIENT
  Age: 58 Year
  Sex: Male

DRUGS (1)
  1. GLIVEC [Suspect]
     Active Substance: IMATINIB MESYLATE
     Indication: CHRONIC MYELOID LEUKAEMIA
     Dosage: 400 MG
     Dates: start: 20140513, end: 20140816

REACTIONS (4)
  - Chronic myeloid leukaemia [Unknown]
  - Sepsis [Fatal]
  - Malignant neoplasm progression [Unknown]
  - Skin infection [Unknown]

NARRATIVE: CASE EVENT DATE: 20140916
